FAERS Safety Report 8098624-6 (Version None)
Quarter: 2012Q1

REPORT INFORMATION
  Report Type: 
  Country: None (occurrence: None)
  Receive Date: 20120129
  Receipt Date: 20111024
  Transmission Date: 20120608
  Serious: Yes (Hospitalization)
  Sender: FDA-Public Use
  Company Number: US-ABBOTT-11P-163-0867610-00

PATIENT
  Sex: Female
  Weight: 108.05 kg

DRUGS (5)
  1. HUMIRA [Suspect]
     Indication: RHEUMATOID ARTHRITIS
     Route: 058
     Dates: start: 20081016, end: 20091101
  2. GENERIC ZYRTEC [Concomitant]
     Indication: GASTROOESOPHAGEAL REFLUX DISEASE
  3. ZOLOFT [Concomitant]
     Indication: DEPRESSION
  4. ATARAX [Concomitant]
     Indication: ANXIETY
  5. SEROQUEL [Concomitant]
     Indication: BIPOLAR DISORDER

REACTIONS (1)
  - JOINT INJURY [None]
